FAERS Safety Report 9846565 (Version 2)
Quarter: 2014Q1

REPORT INFORMATION
  Report Type: Report from Study
  Country: FR (occurrence: FR)
  Receive Date: 20140127
  Receipt Date: 20140211
  Transmission Date: 20141002
  Serious: Yes (Death, Hospitalization, Other)
  Sender: FDA-Public Use
  Company Number: FR-CELGENEUS-056-21880-14012749

PATIENT
  Age: 70 Year
  Sex: Male
  Weight: 61 kg

DRUGS (13)
  1. REVLIMID [Suspect]
     Indication: PLASMA CELL MYELOMA
     Dosage: 20 MILLIGRAM
     Route: 048
     Dates: start: 20060726
  2. REVLIMID [Suspect]
     Dosage: 45 MILLIGRAM
     Route: 048
     Dates: start: 20061103
  3. REVLIMID [Suspect]
     Dosage: 15 MILLIGRAM
     Route: 048
     Dates: start: 20060810, end: 20110216
  4. EUPANTOL [Concomitant]
     Indication: PRODUCT USED FOR UNKNOWN INDICATION
     Route: 048
  5. LEDERFOLINE [Concomitant]
     Indication: PROPHYLAXIS
     Route: 048
  6. ZELITREX [Concomitant]
     Indication: PROPHYLAXIS
     Route: 048
  7. AMOXILILINE ACIDE CLAVULIQUE [Concomitant]
     Indication: PYREXIA
     Dosage: 1G/200MG
     Route: 048
  8. RED BLOOD CELLS [Concomitant]
     Indication: PANCYTOPENIA
     Route: 041
     Dates: start: 20131213, end: 201312
  9. RED BLOOD CELLS [Concomitant]
     Indication: FEBRILE BONE MARROW APLASIA
  10. BACTRIM [Concomitant]
     Indication: PROPHYLAXIS
     Route: 065
  11. ORACILLINE [Concomitant]
     Indication: PROPHYLAXIS
     Route: 065
  12. PRESTOLE [Concomitant]
     Indication: HYPERTENSION
     Route: 065
  13. ORACILLIN [Concomitant]
     Indication: PRODUCT USED FOR UNKNOWN INDICATION
     Route: 065

REACTIONS (1)
  - Acute myeloid leukaemia [Fatal]
